FAERS Safety Report 20807445 (Version 1)
Quarter: 2022Q2

REPORT INFORMATION
  Report Type: Spontaneous
  Country: US (occurrence: None)
  Receive Date: 20220509
  Receipt Date: 20220509
  Transmission Date: 20220721
  Serious: Yes (Other)
  Sender: FDA-Public Use
  Company Number: None

PATIENT
  Age: 81 Year
  Sex: Male

DRUGS (1)
  1. CAPECITABINE [Suspect]
     Active Substance: CAPECITABINE
     Indication: Colon cancer
     Dosage: FREQUENCY : TWICE A DAY;?
     Route: 048
     Dates: start: 202201

REACTIONS (8)
  - Diarrhoea [None]
  - Asthenia [None]
  - Balance disorder [None]
  - Decreased appetite [None]
  - Weight decreased [None]
  - Blood glucose decreased [None]
  - Dehydration [None]
  - Nervousness [None]

NARRATIVE: CASE EVENT DATE: 20220404
